FAERS Safety Report 20411053 (Version 1)
Quarter: 2022Q1

REPORT INFORMATION
  Report Type: Spontaneous
  Country: US (occurrence: None)
  Receive Date: 20220131
  Receipt Date: 20220131
  Transmission Date: 20220424
  Serious: No
  Sender: FDA-Public Use
  Company Number: None

PATIENT
  Age: 96 Year
  Sex: Male

DRUGS (1)
  1. SOLIFENACIN SUCCINATE 10 MG [Suspect]
     Active Substance: SOLIFENACIN SUCCINATE
     Indication: Product used for unknown indication
     Dosage: FREQUENCY : DAILY;?
     Route: 048
     Dates: start: 20210923, end: 20211027

REACTIONS (1)
  - Hallucination [None]

NARRATIVE: CASE EVENT DATE: 20211027
